FAERS Safety Report 18272720 (Version 15)
Quarter: 2023Q4

REPORT INFORMATION
  Report Type: Other
  Country: CA (occurrence: None)
  Receive Date: 20200916
  Receipt Date: 20231221
  Transmission Date: 20240110
  Serious: Yes (Other)
  Sender: FDA-Public Use
  Company Number: CA-ROCHE-2065260

PATIENT
  Age: 49 Year
  Sex: Female
  Weight: 62.1 kg

DRUGS (7)
  1. OCREVUS [Suspect]
     Active Substance: OCRELIZUMAB
     Indication: Relapsing-remitting multiple sclerosis
     Dosage: LIQUID 300MG IV DS 250ML NACL.9% (SECOND INFUSION: 09/FEB/2018)?300MG ON DAY 0 AND DAY 14, THEN 600M
     Route: 042
     Dates: start: 20180126
  2. HUMATIN [Concomitant]
     Active Substance: PAROMOMYCIN SULFATE
  3. ABILIFY [Concomitant]
     Active Substance: ARIPIPRAZOLE
  4. VYVANSE [Concomitant]
     Active Substance: LISDEXAMFETAMINE DIMESYLATE
  5. DEXEDRINE [Concomitant]
     Active Substance: DEXTROAMPHETAMINE SULFATE
  6. VARENICLINE TARTRATE [Concomitant]
     Active Substance: VARENICLINE TARTRATE
     Indication: Ex-tobacco user
  7. BACLOFEN [Concomitant]
     Active Substance: BACLOFEN

REACTIONS (24)
  - Gastroenteritis bacterial [Not Recovered/Not Resolved]
  - Pyelonephritis [Recovering/Resolving]
  - Polyp [Unknown]
  - Syphilis [Unknown]
  - Hepatitis [Unknown]
  - Migraine [Recovered/Resolved]
  - Diarrhoea [Not Recovered/Not Resolved]
  - Neuralgia [Unknown]
  - Asthenia [Unknown]
  - Fatigue [Unknown]
  - Nausea [Recovered/Resolved]
  - Abdominal pain upper [Recovered/Resolved]
  - Urinary tract infection [Recovered/Resolved]
  - Somnolence [Recovered/Resolved]
  - Balance disorder [Not Recovered/Not Resolved]
  - Muscle spasms [Not Recovered/Not Resolved]
  - Pain in extremity [Unknown]
  - Ear pruritus [Recovered/Resolved]
  - Psychomotor hyperactivity [Unknown]
  - Hepatic enzyme increased [Unknown]
  - Chest pain [Not Recovered/Not Resolved]
  - Rash [Not Recovered/Not Resolved]
  - Pain in extremity [Unknown]
  - Muscle spasms [Unknown]

NARRATIVE: CASE EVENT DATE: 20180126
